FAERS Safety Report 9326097 (Version 1)
Quarter: 2013Q2

REPORT INFORMATION
  Report Type: Spontaneous
  Country: US (occurrence: None)
  Receive Date: 20130603
  Receipt Date: 20130603
  Transmission Date: 20140414
  Serious: Yes (Disabling)
  Sender: FDA-Public Use
  Company Number: None

PATIENT
  Age: 82 Year
  Sex: Male
  Weight: 102.51 kg

DRUGS (1)
  1. LISINOPRIL 5 MG [Suspect]
     Indication: RENAL DISORDER
     Route: 048
     Dates: start: 20120324, end: 20121127

REACTIONS (2)
  - Renal failure [None]
  - Product quality issue [None]
